FAERS Safety Report 7586110-9 (Version None)
Quarter: 2011Q2

REPORT INFORMATION
  Report Type: 
  Country: None (occurrence: None)
  Receive Date: 20110603
  Receipt Date: 20110502
  Transmission Date: 20111010
  Serious: No
  Sender: FDA-Public Use
  Company Number: 2011SP019917

PATIENT
  Age: 54 Year
  Sex: Female

DRUGS (5)
  1. FLONASE [Concomitant]
  2. SAPHRIS [Suspect]
     Indication: PRODUCT USED FOR UNKNOWN INDICATION
     Dosage: PO ; 0.5 DF;BID;PO
     Route: 048
     Dates: start: 20110424
  3. FLOVENT [Concomitant]
  4. LITHIUM [Concomitant]
  5. ZYRTEC [Concomitant]

REACTIONS (9)
  - UNDERDOSE [None]
  - INCORRECT ROUTE OF DRUG ADMINISTRATION [None]
  - ASTHENIA [None]
  - FEELING DRUNK [None]
  - INSOMNIA [None]
  - WRONG TECHNIQUE IN DRUG USAGE PROCESS [None]
  - FEELING ABNORMAL [None]
  - DRUG PRESCRIBING ERROR [None]
  - SOMNOLENCE [None]
